FAERS Safety Report 8954444 (Version 2)
Quarter: 2013Q1

REPORT INFORMATION
  Report Type: Spontaneous
  Country: US (occurrence: US)
  Receive Date: 20121207
  Receipt Date: 20130117
  Transmission Date: 20140127
  Serious: Yes (Other)
  Sender: FDA-Public Use
  Company Number: US-AMGEN-USASP2012069468

PATIENT
  Age: 74 Year
  Sex: Female
  Weight: 113.38 kg

DRUGS (5)
  1. ENBREL [Suspect]
     Indication: RHEUMATOID ARTHRITIS
     Dosage: 50 MG, QWK
     Route: 058
     Dates: start: 20120430
  2. ENBREL [Suspect]
     Indication: PSORIATIC ARTHROPATHY
  3. PREDNISONE [Concomitant]
     Dosage: 2.5 MG, QD
     Dates: start: 20110719
  4. METHOTREXATE [Concomitant]
     Dosage: UNK UNK, QD
     Dates: start: 20110719
  5. FOLIC ACID [Concomitant]
     Dosage: UNK

REACTIONS (1)
  - Squamous cell carcinoma [Unknown]
